FAERS Safety Report 6582767-X (Version None)
Quarter: 2010Q1

REPORT INFORMATION
  Report Type: 
  Country: None (occurrence: None)
  Receive Date: 20100216
  Receipt Date: 20100201
  Transmission Date: 20100710
  Serious: Yes (Other)
  Sender: FDA-Public Use
  Company Number: JP-PFIZER INC-2010019740

PATIENT
  Sex: Male

DRUGS (1)
  1. DIFLUCAN [Suspect]
     Indication: INFECTION
     Dosage: UNK
     Route: 048
     Dates: start: 20070702, end: 20071202

REACTIONS (1)
  - DRUG INEFFECTIVE [None]
